FAERS Safety Report 14524552 (Version 1)
Quarter: 2018Q1

REPORT INFORMATION
  Report Type: Spontaneous
  Country: IT (occurrence: IT)
  Receive Date: 20180213
  Receipt Date: 20180213
  Transmission Date: 20180509
  Serious: Yes (Hospitalization)
  Sender: FDA-Public Use
  Company Number: IT-ACCORD-063442

PATIENT
  Age: 65 Year
  Sex: Female

DRUGS (6)
  1. METHOTREXATE. [Suspect]
     Active Substance: METHOTREXATE
     Indication: RHEUMATOID ARTHRITIS
     Route: 030
     Dates: start: 20130901, end: 20171218
  2. LANSOPRAZOLE. [Concomitant]
     Active Substance: LANSOPRAZOLE
  3. SEQUACOR [Concomitant]
     Active Substance: BISOPROLOL
  4. DIBASE [Concomitant]
     Active Substance: CHOLECALCIFEROL
  5. ENBREL [Suspect]
     Active Substance: ETANERCEPT
     Indication: RHEUMATOID ARTHRITIS
     Dosage: STRENGTH: 25 MG
     Route: 058
     Dates: start: 20150519, end: 20171128
  6. FOLINA [Concomitant]
     Active Substance: FOLIC ACID

REACTIONS (1)
  - Mediastinitis [Recovered/Resolved]

NARRATIVE: CASE EVENT DATE: 20171218
